FAERS Safety Report 13065629 (Version 2)
Quarter: 2017Q1

REPORT INFORMATION
  Report Type: Spontaneous
  Country: US (occurrence: US)
  Receive Date: 20161227
  Receipt Date: 20170117
  Transmission Date: 20170428
  Serious: Yes (Hospitalization, Other)
  Sender: FDA-Public Use
  Company Number: US-PFIZER INC-2016585516

PATIENT
  Age: 39 Year
  Sex: Female

DRUGS (1)
  1. EFFEXOR XR [Suspect]
     Active Substance: VENLAFAXINE HYDROCHLORIDE
     Dosage: 75 MG, 2X/DAY (75 MG X 2)
     Dates: start: 2000

REACTIONS (16)
  - Asthenia [Recovered/Resolved]
  - Heart rate decreased [Recovered/Resolved]
  - Limb discomfort [Recovered/Resolved]
  - Cerebral disorder [Recovered/Resolved]
  - Blood pressure abnormal [Recovered/Resolved]
  - Hypersensitivity [Recovered/Resolved]
  - Chest pain [Recovered/Resolved]
  - Agitation [Recovered/Resolved]
  - Crying [Unknown]
  - Loss of consciousness [Recovered/Resolved]
  - Memory impairment [Recovered/Resolved]
  - Feeling abnormal [Recovered/Resolved]
  - Palpitations [Recovered/Resolved]
  - Language disorder [Recovered/Resolved]
  - Headache [Recovered/Resolved]
  - Post-traumatic stress disorder [Unknown]
